FAERS Safety Report 9004688 (Version 2)
Quarter: 2013Q1

REPORT INFORMATION
  Report Type: Spontaneous
  Country: GB (occurrence: None)
  Receive Date: 20121227
  Receipt Date: 20121227
  Transmission Date: 20140127
  Serious: Yes (Disabling, Other)
  Sender: FDA-Public Use
  Company Number: AUR-APL-2012-05490

PATIENT
  Age: 52 Year
  Sex: Male
  Weight: 100 kg

DRUGS (4)
  1. CITALOPRAM (CITALOPRAM) [Suspect]
     Indication: DEPRESSION
     Dosage: 20 MG ONCE A DAY AND GRADUALLY REDUCING DOSES DOWN TO ZERO, ORAL
     Dates: start: 20110406, end: 20110429
  2. FLUOXETINE (FLUOXETINE) [Suspect]
     Indication: DEPRESSION
     Dosage: 0.5 MG ONCE A DAY THEN REDUCED TO 0.2 MG TO ZERO/DAY, ORAL
     Dates: start: 20110509, end: 20110527
  3. MIRTAZAPINE (MIRTAZAPINE) [Suspect]
     Indication: DEPRESSION
     Route: 048
     Dates: start: 20110610, end: 20110610
  4. IBUPROFEN (IBUPROFEN) [Concomitant]

REACTIONS (7)
  - Muscle twitching [None]
  - Serotonin syndrome [None]
  - Nausea [None]
  - Abdominal pain [None]
  - Hypersomnia [None]
  - Depression [None]
  - Headache [None]
